FAERS Safety Report 5503187-2 (Version None)
Quarter: 2007Q4

REPORT INFORMATION
  Report Type: 
  Country: None (occurrence: None)
  Receive Date: 20071031
  Receipt Date: 20071023
  Transmission Date: 20080405
  Serious: Yes (Hospitalization)
  Sender: FDA-Public Use
  Company Number: DE-AMGEN-US232880

PATIENT
  Sex: Female
  Weight: 67 kg

DRUGS (1)
  1. ENBREL [Suspect]
     Indication: POLYARTHRITIS
     Dosage: 25 MG ONE TO TWO TIMES WEEKLY
     Route: 058
     Dates: start: 20040401, end: 20070501

REACTIONS (1)
  - MALIGNANT MELANOMA [None]
